FAERS Safety Report 4798839-6 (Version None)
Quarter: 2005Q4

REPORT INFORMATION
  Report Type: 
  Country: None (occurrence: None)
  Receive Date: 20051014
  Receipt Date: 20050711
  Transmission Date: 20060501
  Serious: Yes (Other)
  Sender: FDA-Public Use
  Company Number: US-KINGPHARMUSA00001-K200500939

PATIENT
  Age: 52 Year
  Sex: Female
  Weight: 67 kg

DRUGS (2)
  1. DELESTROGEN [Suspect]
     Indication: HORMONE REPLACEMENT THERAPY
     Dosage: .6 ML, DAY 4 AND DAY 24 Q MONTH
     Route: 030
     Dates: start: 19840101
  2. HYDROCHLOROTHIAZIDE [Concomitant]
     Dosage: 25 MG, QD
     Route: 048

REACTIONS (8)
  - CATARACT [None]
  - DRUG EFFECT DECREASED [None]
  - DRUG INEFFECTIVE [None]
  - HOT FLUSH [None]
  - NIGHT SWEATS [None]
  - PHARMACEUTICAL PRODUCT COMPLAINT [None]
  - VAGINAL DISORDER [None]
  - VISUAL DISTURBANCE [None]
